FAERS Safety Report 5023902-4 (Version None)
Quarter: 2006Q2

REPORT INFORMATION
  Report Type: 
  Country: None (occurrence: None)
  Receive Date: 20060607
  Receipt Date: 20060525
  Transmission Date: 20061013
  Serious: Yes (Death, Hospitalization, Other)
  Sender: FDA-Public Use
  Company Number: US-2006-013439

PATIENT
  Sex: Male

DRUGS (1)
  1. CAMPATH [Suspect]
     Dosage: 14 TREATMENTS

REACTIONS (4)
  - HEPATIC FAILURE [None]
  - INFECTION [None]
  - NEUTROPENIA [None]
  - UNEVALUABLE EVENT [None]
